FAERS Safety Report 9053907 (Version 1)
Quarter: 2013Q1

REPORT INFORMATION
  Report Type: Spontaneous
  Country: US (occurrence: US)
  Receive Date: 20130206
  Receipt Date: 20130206
  Transmission Date: 20140127
  Serious: Yes (Hospitalization, Other)
  Sender: FDA-Public Use
  Company Number: US-009507513-1106USA01823

PATIENT
  Sex: Female

DRUGS (14)
  1. FOSAMAX [Suspect]
     Indication: OSTEOPOROSIS
     Dosage: 70 MG, UNK
     Route: 048
     Dates: start: 199801, end: 20081013
  2. FOSAMAX [Suspect]
     Indication: OSTEOPENIA
     Dosage: 10 MG, UNK
     Route: 048
     Dates: start: 19980114, end: 200001
  3. FOSAMAX [Suspect]
     Dosage: 35 MG, UNK
     Route: 048
     Dates: start: 20000105, end: 20081013
  4. FOSAMAX PLUS D [Suspect]
     Indication: OSTEOPENIA
     Dosage: 70 MG, UNK
     Route: 048
     Dates: start: 20000105, end: 20081013
  5. CITRACAL [Concomitant]
     Dosage: 630 MG, UNK
     Dates: start: 199006
  6. COSAMIN DS [Concomitant]
     Dosage: 230 MG, UNK
  7. OMEGA-3 MARINE TRIGLYCERIDES [Concomitant]
     Dosage: 170 MG, UNK
  8. FLAXSEED [Concomitant]
     Dosage: 1000 MG, UNK
  9. GARLIC [Concomitant]
     Dosage: 1250 MG, UNK
  10. BIOGENESIS TRI MAGNESIUM [Concomitant]
     Dosage: 300 MG, UNK
  11. THERAPY UNSPECIFIED [Concomitant]
     Dosage: 81 MG, UNK
  12. FOSAMAX [Suspect]
     Dosage: 70 MG, UNK
     Dates: start: 20080310, end: 20090530
  13. ESTRATEST [Concomitant]
  14. COMBIPATCH [Concomitant]
     Dates: end: 20010220

REACTIONS (41)
  - Low turnover osteopathy [Unknown]
  - Femur fracture [Unknown]
  - Femur fracture [Recovered/Resolved]
  - Fall [Unknown]
  - Fall [Unknown]
  - Medical device complication [Unknown]
  - Vitamin D deficiency [Unknown]
  - Hot flush [Unknown]
  - Nasal congestion [Unknown]
  - Fall [Unknown]
  - Concussion [Unknown]
  - Large intestine polyp [Unknown]
  - Appendicectomy [Unknown]
  - Carpal tunnel syndrome [Unknown]
  - Abdominal discomfort [Unknown]
  - Arthralgia [Unknown]
  - Muscular weakness [Unknown]
  - Pain in extremity [Unknown]
  - Drug ineffective [Unknown]
  - Muscle strain [Unknown]
  - Skin reaction [Unknown]
  - Traumatic haematoma [Unknown]
  - Skull fracture [Unknown]
  - Craniocerebral injury [Unknown]
  - Post concussion syndrome [Unknown]
  - Contusion [Recovering/Resolving]
  - Muscle strain [Unknown]
  - Pain in extremity [Unknown]
  - Rhinitis allergic [Unknown]
  - Anosmia [Unknown]
  - Retinal tear [Unknown]
  - Urinary incontinence [Unknown]
  - Migraine [Unknown]
  - Blood pressure increased [Unknown]
  - Deafness [Unknown]
  - Peroneal nerve palsy [Unknown]
  - Depression [Unknown]
  - Device component issue [Unknown]
  - Bursitis [Unknown]
  - Open reduction of fracture [Unknown]
  - Open reduction of fracture [Recovered/Resolved]
